FAERS Safety Report 24250680 (Version 1)
Quarter: 2024Q3

REPORT INFORMATION
  Report Type: Spontaneous
  Country: US (occurrence: None)
  Receive Date: 20240826
  Receipt Date: 20240826
  Transmission Date: 20241017
  Serious: Yes (Hospitalization)
  Sender: Public
  Company Number: None

PATIENT
  Age: 71 Year
  Sex: Female

DRUGS (11)
  1. TADALAFIL [Suspect]
     Active Substance: TADALAFIL
     Indication: Pulmonary arterial hypertension
     Dosage: FREQUENCY : TWICE A DAY;?
     Route: 048
     Dates: start: 20190207
  2. AMILORIDE [Concomitant]
     Active Substance: AMILORIDE
  3. B-COMPLEX [Concomitant]
  4. CIMETIDINE [Concomitant]
  5. CREON [Concomitant]
     Active Substance: PANCRELIPASE AMYLASE\PANCRELIPASE LIPASE\PANCRELIPASE PROTEASE
  6. D2000 ULTRA STRENGTH [Concomitant]
  7. DEPAKOTE [Concomitant]
     Active Substance: DIVALPROEX SODIUM
  8. DIGOXIN [Concomitant]
  9. ESTRADIOL [Concomitant]
     Active Substance: ESTRADIOL
  10. FENOFIBRATE [Concomitant]
     Active Substance: FENOFIBRATE
  11. FENTANYL [Concomitant]
     Active Substance: FENTANYL\FENTANYL CITRATE

REACTIONS (1)
  - Cerebral cyst [None]

NARRATIVE: CASE EVENT DATE: 20240801
